FAERS Safety Report 16598251 (Version 1)
Quarter: 2019Q3

REPORT INFORMATION
  Report Type: Spontaneous
  Country: FR (occurrence: FR)
  Receive Date: 20190719
  Receipt Date: 20190719
  Transmission Date: 20191004
  Serious: Yes (Hospitalization)
  Sender: FDA-Public Use
  Company Number: FR-MYLANLABS-2019M1067607

PATIENT
  Age: 86 Year
  Sex: Female
  Weight: 65 kg

DRUGS (1)
  1. VALSARTAN. [Suspect]
     Active Substance: VALSARTAN
     Indication: PRODUCT USED FOR UNKNOWN INDICATION
     Dosage: 320 MILLIGRAM, QD (160 MG, BID)
     Route: 048
     Dates: start: 201812

REACTIONS (3)
  - Dyspnoea [Unknown]
  - Cough [Unknown]
  - Respiratory distress [Unknown]

NARRATIVE: CASE EVENT DATE: 20190202
